FAERS Safety Report 15274257 (Version 4)
Quarter: 2019Q1

REPORT INFORMATION
  Report Type: Spontaneous
  Country: US (occurrence: US)
  Receive Date: 20180814
  Receipt Date: 20190318
  Transmission Date: 20190417
  Serious: Yes (Life-Threatening, Hospitalization, Other)
  Sender: FDA-Public Use
  Company Number: US-AUROBINDO-AUR-APL-2018-040561

PATIENT

DRUGS (11)
  1. VITAMIN D [Suspect]
     Active Substance: CHOLECALCIFEROL
     Indication: MACULAR DEGENERATION
  2. VALSARTAN. [Concomitant]
     Active Substance: VALSARTAN
     Indication: HYPERTENSION
     Dosage: UNK
     Route: 065
  3. CIPROFLOXACIN. [Concomitant]
     Active Substance: CIPROFLOXACIN
     Indication: DIVERTICULITIS
     Dosage: UNK
     Route: 048
  4. CALCIUM [Suspect]
     Active Substance: CALCIUM
     Indication: SUPPLEMENTATION THERAPY
     Dosage: 600 MILLIGRAM, ONCE A DAY
     Route: 065
  5. CHOLECALCIFEROL [Suspect]
     Active Substance: CHOLECALCIFEROL
     Indication: SUPPLEMENTATION THERAPY
     Dosage: 800 INTERNATIONAL UNIT
     Route: 065
  6. HYDROCHLOROTHIAZIDE. [Suspect]
     Active Substance: HYDROCHLOROTHIAZIDE
     Indication: HYPERTENSION
     Dosage: UNK
     Route: 065
  7. VALSARTAN AND HYDROCHLOROTHIAZIDE [Suspect]
     Active Substance: HYDROCHLOROTHIAZIDE\VALSARTAN
     Indication: HYPERTENSION
     Dosage: 320 TO 12.5 MG DAILY
     Route: 065
  8. VITAMIN A [Suspect]
     Active Substance: VITAMIN A
     Indication: MACULAR DEGENERATION
  9. VITAMIN D [Suspect]
     Active Substance: CHOLECALCIFEROL
     Indication: SUPPLEMENTATION THERAPY
     Dosage: 800 INTERNATIONAL UNIT, ONCE A DAY
     Route: 065
  10. VITAMIN A [Suspect]
     Active Substance: VITAMIN A
     Indication: SUPPLEMENTATION THERAPY
     Dosage: 11000 INTERNATIONAL UNIT, ONCE A DAY
     Route: 065
  11. METRONIDAZOLE. [Concomitant]
     Active Substance: METRONIDAZOLE
     Indication: DIVERTICULITIS
     Dosage: UNK
     Route: 048

REACTIONS (1)
  - Hypercalcaemia [Recovered/Resolved]
